FAERS Safety Report 16099427 (Version 1)
Quarter: 2019Q1

REPORT INFORMATION
  Report Type: Spontaneous
  Country: HU (occurrence: HU)
  Receive Date: 20190321
  Receipt Date: 20190321
  Transmission Date: 20190418
  Serious: Yes (Death, Other)
  Sender: FDA-Public Use
  Company Number: HU-CELLTRION INC.-2019HU017944

PATIENT

DRUGS (3)
  1. PACLITAXEL. [Suspect]
     Active Substance: PACLITAXEL
     Indication: INFLAMMATORY CARCINOMA OF THE BREAST
     Dosage: UNK
     Route: 065
  2. DOCETAXEL. [Suspect]
     Active Substance: DOCETAXEL
     Indication: INFLAMMATORY CARCINOMA OF THE BREAST
     Route: 065
  3. TRASTUZUMAB (UNKNOWN) [Suspect]
     Active Substance: TRASTUZUMAB
     Indication: INFLAMMATORY CARCINOMA OF THE BREAST
     Dosage: UNK
     Route: 065

REACTIONS (2)
  - Peripheral sensory neuropathy [Unknown]
  - Death [Fatal]
